FAERS Safety Report 7547424-1 (Version None)
Quarter: 2011Q2

REPORT INFORMATION
  Report Type: 
  Country: None (occurrence: None)
  Receive Date: 20110614
  Receipt Date: 20110120
  Transmission Date: 20111010
  Serious: Yes (Hospitalization, Other)
  Sender: FDA-Public Use
  Company Number: US-BAYER-201038370NA

PATIENT
  Age: 19 Year
  Sex: Female
  Weight: 118 kg

DRUGS (9)
  1. ADVAIR DISKUS 100/50 [Concomitant]
     Dosage: UNK
     Dates: start: 20090101
  2. YASMIN [Suspect]
     Indication: ACNE
  3. DROSPIRENONE AND ETHINYL ESTRADIOL [Suspect]
     Indication: ACNE
  4. YAZ [Suspect]
     Indication: ACNE
  5. NEXIUM [Concomitant]
     Indication: GASTROOESOPHAGEAL REFLUX DISEASE
     Dosage: 40 MG, UNK
     Route: 048
  6. PROVENTIL [Concomitant]
     Dosage: UNK
     Dates: start: 20080101
  7. IBUPROFEN [Concomitant]
     Indication: ABDOMINAL PAIN
  8. ULTRAM [Concomitant]
     Dosage: 100 MG, UNK
     Route: 048
     Dates: start: 20060927
  9. TETRACYCLINE [Concomitant]
     Dosage: UNK
     Dates: start: 20080101, end: 20090101

REACTIONS (6)
  - CHOLECYSTECTOMY [None]
  - INJURY [None]
  - WEIGHT INCREASED [None]
  - PAIN [None]
  - CHOLECYSTITIS [None]
  - HORMONE LEVEL ABNORMAL [None]
